FAERS Safety Report 21187573 (Version 3)
Quarter: 2022Q4

REPORT INFORMATION
  Report Type: Spontaneous
  Country: US (occurrence: US)
  Receive Date: 20220808
  Receipt Date: 20221111
  Transmission Date: 20230113
  Serious: No
  Sender: FDA-Public Use
  Company Number: US-AMGEN-USASP2022133186

PATIENT
  Age: 75 Year
  Sex: Male

DRUGS (14)
  1. REPATHA [Suspect]
     Active Substance: EVOLOCUMAB
     Indication: Product used for unknown indication
     Dosage: 420 MILLIGRAM, QMO
     Route: 065
     Dates: start: 2017
  2. NITROGLYCERIN [Concomitant]
     Active Substance: NITROGLYCERIN
     Dosage: 0.4 MILLIGRAM
     Route: 060
  3. FUROSEMIDE [Concomitant]
     Active Substance: FUROSEMIDE
     Dosage: 20 MILLIGRAM
     Route: 048
  4. XARELTO [Concomitant]
     Active Substance: RIVAROXABAN
     Dosage: 5 MILLIGRAM, QD
     Route: 048
  5. LOSARTAN [Concomitant]
     Active Substance: LOSARTAN
     Dosage: 25 MILLIGRAM
     Route: 048
  6. SOTALOL [Concomitant]
     Active Substance: SOTALOL
     Dosage: 160 MILLIGRAM, QD
     Route: 048
  7. ISOSORBIDE DINITRATE [Concomitant]
     Active Substance: ISOSORBIDE DINITRATE
     Dosage: 20 MILLIGRAM, QD. TAKE 2 TABLETS BY MOUTH TWICE DAILY
     Route: 048
  8. GABAPENTIN [Concomitant]
     Active Substance: GABAPENTIN
     Dosage: 300 MILLIGRAM, TAKE 1 BY MOUTH THREE TIMES A DAY
     Route: 048
  9. FINASTERIDE [Concomitant]
     Active Substance: FINASTERIDE
     Dosage: 5 MILLIGRAM, QD
     Route: 048
  10. FOLIC ACID [Concomitant]
     Active Substance: FOLIC ACID
     Dosage: 0.8 MILLIGRAM AS DIRECTED
  11. MINERALS\VITAMINS [Concomitant]
     Active Substance: MINERALS\VITAMINS
     Dosage: 0,4-300-250 NIG-MR-G-MCG TABLET (I-NUITIVIT-I-NIN-FA-LYCOPEN-LUTEIN) TAKE 1 BY MOUTH ONCE A
     Route: 048
  12. KRILL OIL [Concomitant]
     Active Substance: DIETARY SUPPLEMENT\KRILL OIL
     Dosage: 1000-130(40-80) I-NG CAPSULE (KRILL-OM3-DHA-EPA-OM6-LIP-ASTX) TAKE 1 BY MOUTH
     Route: 048
  13. ATORVASTATIN [Concomitant]
     Active Substance: ATORVASTATIN
     Dosage: 80 MILLIGRAM, QD
     Route: 048
  14. ASPIRIN [Concomitant]
     Active Substance: ASPIRIN
     Dosage: 81 MILLIGRAM, QD
     Route: 048

REACTIONS (1)
  - Drug dose omission by device [Unknown]

NARRATIVE: CASE EVENT DATE: 20220801
